FAERS Safety Report 20052613 (Version 2)
Quarter: 2021Q4

REPORT INFORMATION
  Report Type: Spontaneous
  Country: IN (occurrence: IN)
  Receive Date: 20211110
  Receipt Date: 20211118
  Transmission Date: 20220303
  Serious: Yes (Hospitalization)
  Sender: FDA-Public Use
  Company Number: IN-TORRENT-00002939

PATIENT
  Age: 65 Year
  Sex: Male

DRUGS (17)
  1. ESOMEPRAZOLE [Suspect]
     Active Substance: ESOMEPRAZOLE
     Indication: Product used for unknown indication
     Dosage: TDS, BEFORE BREAKFAST, LUNCH AND DINNER
  2. AMLODIPINE BESYLATE [Concomitant]
     Active Substance: AMLODIPINE BESYLATE
     Indication: Product used for unknown indication
     Dosage: 0-1-0 NOON
  3. ATIVAN [Concomitant]
     Active Substance: LORAZEPAM
     Indication: Product used for unknown indication
     Dosage: HS (AT NIGHT)?PO (PER ORAL)
     Route: 048
  4. Cremasan [Concomitant]
     Indication: Product used for unknown indication
     Dosage: 3 TSF (TABLESPOON) ?HS (AT NIGHT)
     Route: 048
  5. Dexona [Concomitant]
     Indication: Product used for unknown indication
     Dosage: MORNING
  6. Dolovet [Concomitant]
     Indication: Product used for unknown indication
     Dosage: 1 AMP STAT?MORNING
  7. DULCOLAX NOS [Concomitant]
     Active Substance: BISACODYL OR DOCUSATE SODIUM
     Indication: Product used for unknown indication
     Dosage: NOON
  8. ELIQUIS [Concomitant]
     Active Substance: APIXABAN
     Indication: Product used for unknown indication
     Dosage: 1-0-1, MORNING AND EVENING
     Route: 048
  9. Eritel-Trio [Concomitant]
     Indication: Product used for unknown indication
     Dosage: 0-0-1 NIGHT
  10. Hyponat [Concomitant]
     Indication: Product used for unknown indication
     Dosage: 1-0-0 ?MORNING
  11. Liquid Digene [Concomitant]
     Indication: Product used for unknown indication
     Dosage: 2 TABLESPOON (TDS), BBF, BL AND BD
  12. OCTREOTIDE [Concomitant]
     Active Substance: OCTREOTIDE
     Indication: Product used for unknown indication
     Dosage: 8 HOURLY?EVENING
     Route: 058
  13. ACETAMINOPHEN [Concomitant]
     Active Substance: ACETAMINOPHEN
     Indication: Product used for unknown indication
     Dosage: 3 AMPULES/100 ML NORMAL SALINE; TDS (MORNING, NOON AND NIGHT)
  14. RANITIDINE HYDROCHLORIDE [Concomitant]
     Active Substance: RANITIDINE HYDROCHLORIDE
     Indication: Product used for unknown indication
     Dosage: 1-0-1(BD) BEFORE BREAKFAST (BBF) AND BEFORE DINNER (BD)
     Route: 048
  15. ROBINAX [Concomitant]
     Indication: Product used for unknown indication
     Dosage: 1-0-1 (BD) PO; SOS ASKS FOR PAIN
     Route: 048
  16. SLANAC [Concomitant]
     Indication: Product used for unknown indication
     Dosage: MORNING, NOON, EVENING, AND NIGHT (4 TIMES DAILY (QDS))
     Route: 061
  17. TRAMADOL [Concomitant]
     Active Substance: TRAMADOL
     Indication: Product used for unknown indication
     Dosage: 1 AMP WITH EMSET IN 100ML NORMAL SALINE, (BD) MORNING, NOON

REACTIONS (1)
  - Hypoglycaemia [Recovered/Resolved]

NARRATIVE: CASE EVENT DATE: 20211021
